FAERS Safety Report 15650980 (Version 4)
Quarter: 2019Q1

REPORT INFORMATION
  Report Type: Spontaneous
  Country: BR (occurrence: BR)
  Receive Date: 20181123
  Receipt Date: 20190313
  Transmission Date: 20190417
  Serious: Yes (Death, Hospitalization)
  Sender: FDA-Public Use
  Company Number: BR-BEH-2018097080

PATIENT
  Age: 73 Year
  Sex: Male
  Weight: 76 kg

DRUGS (5)
  1. SANDOGLOBULINA [Suspect]
     Active Substance: HUMAN IMMUNOGLOBULIN G
     Indication: IMMUNE THROMBOCYTOPENIC PURPURA
     Dosage: 2000 MG/KG (2 G/KG; INFUSION RATE: 267 ML/H), QD
     Route: 042
     Dates: start: 20181120, end: 20181121
  2. CHLORTHALIDONE. [Concomitant]
     Active Substance: CHLORTHALIDONE
  3. PREDNISONE. [Concomitant]
     Active Substance: PREDNISONE
     Dosage: 20 MG, TID
     Route: 065
  4. ROSUVASTATIN. [Concomitant]
     Active Substance: ROSUVASTATIN
  5. IVERMECTIN. [Concomitant]
     Active Substance: IVERMECTIN

REACTIONS (6)
  - Respiratory disorder [Fatal]
  - Hypertension [Recovered/Resolved]
  - Pyrexia [Recovered/Resolved]
  - Pneumonia [Fatal]
  - Tremor [Recovered/Resolved]
  - Cardio-respiratory arrest [Fatal]

NARRATIVE: CASE EVENT DATE: 20181120
